FAERS Safety Report 8990448 (Version 2)
Quarter: 2013Q2

REPORT INFORMATION
  Report Type: Report from Study
  Country: TR (occurrence: TR)
  Receive Date: 20121228
  Receipt Date: 20130531
  Transmission Date: 20140414
  Serious: Yes (Hospitalization, Other)
  Sender: FDA-Public Use
  Company Number: TR-PFIZER INC-2012326149

PATIENT
  Age: 50 Year
  Sex: Female
  Weight: 157 kg

DRUGS (18)
  1. METHOTREXATE SODIUM [Suspect]
     Dosage: 15 MG, WEEKLY
     Route: 048
     Dates: start: 20100105
  2. SULFASALAZINE [Suspect]
     Dosage: 2 G, UNK
     Route: 048
     Dates: start: 20100105
  3. TOCILIZUMAB [Suspect]
     Indication: RHEUMATOID ARTHRITIS
     Dosage: 8 MG/KG
     Route: 042
     Dates: start: 20120621
  4. TOCILIZUMAB [Suspect]
     Dosage: 576 MG, UNK
     Route: 042
     Dates: start: 20120720
  5. TOCILIZUMAB [Suspect]
     Dosage: 560 MG, UNK
     Route: 042
     Dates: start: 20120817
  6. DICLOFENAC [Concomitant]
     Dosage: 150 MG, UNK
     Route: 048
     Dates: start: 20100105
  7. HYDROXYCHLOROQUINE [Concomitant]
     Dosage: 200 MG, UNK
     Dates: start: 20100105
  8. PREDNISOLONE [Concomitant]
     Dosage: 5 MG, UNK
     Dates: start: 20100105
  9. PLAQUENIL [Concomitant]
     Dosage: 200 MG, UNK
     Route: 048
     Dates: start: 20120105
  10. PREDNISOLONE ACETATE [Concomitant]
     Dosage: 15 MG, UNK
     Route: 048
     Dates: start: 20121212
  11. LANSOPRAZOLE [Concomitant]
     Dosage: 40 MG, UNK
     Route: 048
     Dates: start: 20120105
  12. FOLIC ACID [Concomitant]
     Dosage: 15 MG, WEEKLY
     Dates: start: 20100105
  13. PANTOPRAZOLE [Concomitant]
     Dosage: 40 MG, UNK
     Dates: start: 20100105
  14. CALCIUM [Concomitant]
     Dosage: 2500 MG, UNK
     Dates: start: 20120125
  15. VOLTAREN [Concomitant]
     Dosage: 150 MG, UNK
  16. FERRO SANOL DUODENAL [Concomitant]
     Dosage: 400 MG, UNK
     Dates: start: 20130425
  17. FOLBIOL [Concomitant]
     Dosage: 5 MG, WEEKLY
     Dates: start: 20120105
  18. SALAZOPYRINE [Concomitant]
     Dosage: 1000 MG, UNK
     Dates: start: 20130105

REACTIONS (3)
  - Vasculitic rash [Recovering/Resolving]
  - Blood cholesterol increased [Unknown]
  - Low density lipoprotein increased [Unknown]
